FAERS Safety Report 24384144 (Version 1)
Quarter: 2024Q4

REPORT INFORMATION
  Report Type: Spontaneous
  Country: CO (occurrence: CO)
  Receive Date: 20241001
  Receipt Date: 20241001
  Transmission Date: 20250115
  Serious: Yes (Death)
  Sender: NOVO NORDISK
  Company Number: CO-NOVOPROD-1288345

PATIENT
  Sex: Female

DRUGS (1)
  1. OZEMPIC [Suspect]
     Active Substance: SEMAGLUTIDE
     Indication: Product used for unknown indication
     Dosage: 0.5 MG, QW

REACTIONS (1)
  - Death [Fatal]

NARRATIVE: CASE EVENT DATE: 20240724
